FAERS Safety Report 7819558-5 (Version None)
Quarter: 2011Q4

REPORT INFORMATION
  Report Type: 
  Country: None (occurrence: None)
  Receive Date: 20111013
  Receipt Date: 20110811
  Transmission Date: 20120403
  Serious: No
  Sender: FDA-Public Use
  Company Number: USA/USA/11/0020673

PATIENT
  Age: 73 Year
  Sex: Male

DRUGS (1)
  1. LEVOFLOXACIN [Suspect]
     Indication: PROSTATE INFECTION
     Dosage: 500 MG, 1 IN 1 D, ORAL
     Route: 048
     Dates: start: 20110801

REACTIONS (3)
  - MUSCULOSKELETAL DISCOMFORT [None]
  - MYALGIA [None]
  - MUSCLE SWELLING [None]
